FAERS Safety Report 24016417 (Version 1)
Quarter: 2024Q2

REPORT INFORMATION
  Report Type: Spontaneous
  Country: US (occurrence: US)
  Receive Date: 20240626
  Receipt Date: 20240626
  Transmission Date: 20240716
  Serious: No
  Sender: FDA-Public Use
  Company Number: US-PFIZER INC-PV202400082443

PATIENT

DRUGS (5)
  1. BOSULIF [Suspect]
     Active Substance: BOSUTINIB MONOHYDRATE
  2. TASIGNA [Suspect]
     Active Substance: NILOTINIB
  3. SPRYCEL [Suspect]
     Active Substance: DASATINIB
  4. SCEMBLIX [Suspect]
     Active Substance: ASCIMINIB HYDROCHLORIDE
  5. PONATINIB [Suspect]
     Active Substance: PONATINIB

REACTIONS (1)
  - Pruritus [Recovering/Resolving]
